FAERS Safety Report 5333325-6 (Version None)
Quarter: 2007Q2

REPORT INFORMATION
  Report Type: 
  Country: None (occurrence: None)
  Receive Date: 20070524
  Receipt Date: 20070319
  Transmission Date: 20071010
  Serious: Yes (Hospitalization)
  Sender: FDA-Public Use
  Company Number: FR-BRISTOL-MYERS SQUIBB COMPANY-13638861

PATIENT
  Age: 56 Year
  Sex: Male

DRUGS (8)
  1. SPRYCEL [Suspect]
     Indication: CHRONIC MYELOID LEUKAEMIA
     Route: 048
     Dates: start: 20060817, end: 20061227
  2. CORTANCYL [Concomitant]
  3. BRICANYL [Concomitant]
  4. ATROVENT [Concomitant]
  5. SYMBICORT [Concomitant]
  6. SPIRIVA [Concomitant]
  7. BRONCHODUAL [Concomitant]
  8. OXYGEN [Concomitant]

REACTIONS (7)
  - CHRONIC OBSTRUCTIVE PULMONARY DISEASE [None]
  - DIPLOPIA [None]
  - DRY MOUTH [None]
  - DYSPHAGIA [None]
  - ERYTHROSIS [None]
  - FACIAL PARESIS [None]
  - OPHTHALMOPLEGIA [None]
